FAERS Safety Report 7572077-6 (Version None)
Quarter: 2011Q2

REPORT INFORMATION
  Report Type: 
  Country: None (occurrence: None)
  Receive Date: 20110624
  Receipt Date: 20110620
  Transmission Date: 20111010
  Serious: Yes (Other)
  Sender: FDA-Public Use
  Company Number: GB-ROXANE LABORATORIES, INC.-2011-RO-00855RO

PATIENT
  Age: 3 Month

DRUGS (2)
  1. CYCLOPHOSPHAMIDE [Suspect]
     Indication: PROPHYLAXIS AGAINST TRANSPLANT REJECTION
  2. TREOSULFAN [Suspect]
     Indication: PROPHYLAXIS AGAINST TRANSPLANT REJECTION

REACTIONS (2)
  - EPSTEIN-BARR VIRUS INFECTION [None]
  - CYTOMEGALOVIRUS CHORIORETINITIS [None]
